FAERS Safety Report 5061736-5 (Version None)
Quarter: 2006Q3

REPORT INFORMATION
  Report Type: 
  Country: None (occurrence: None)
  Receive Date: 20060703
  Receipt Date: 20060103
  Transmission Date: 20061208
  Serious: No
  Sender: FDA-Public Use
  Company Number: 2006S1000128

PATIENT
  Age: 48 Year
  Sex: Male

DRUGS (11)
  1. CLOZAPINE [Suspect]
     Indication: SCHIZOPHRENIA, PARANOID TYPE
     Dosage: SEE IMAGE
     Route: 048
  2. OXCARBAZEPINE [Concomitant]
  3. PAROXETINE HYDROCHLORIDE [Concomitant]
  4. LORATADINE [Concomitant]
  5. TOLTERODINE TARTRATE [Concomitant]
  6. SODIUM CHLORIDE [Concomitant]
  7. LITHIUM [Concomitant]
  8. LAMOTRIGINE [Concomitant]
  9. ALBUTEROL SPIROS [Concomitant]
  10. MOMETASONE FUROATE [Concomitant]
  11. TIOTROPIUM BROMIDE [Concomitant]

REACTIONS (1)
  - GRANULOCYTOPENIA [None]
